FAERS Safety Report 12922373 (Version 1)
Quarter: 2016Q4

REPORT INFORMATION
  Report Type: Spontaneous
  Country: US (occurrence: US)
  Receive Date: 20161108
  Receipt Date: 20161108
  Transmission Date: 20170207
  Serious: Yes (Other)
  Sender: FDA-Public Use
  Company Number: US-PURDUE-USA-2016-0134548

PATIENT
  Age: 89 Year
  Sex: Female

DRUGS (3)
  1. BETADINE [Suspect]
     Active Substance: POVIDONE-IODINE
     Indication: WOUND TREATMENT
     Dosage: UNK, SINGLE
     Route: 061
     Dates: start: 20161101, end: 20161101
  2. ROCEPHIN [Concomitant]
     Active Substance: CEFTRIAXONE SODIUM
     Indication: PRODUCT USED FOR UNKNOWN INDICATION
     Dosage: UNK
     Route: 042
  3. PEROXIDE [Concomitant]
     Active Substance: HYDROGEN PEROXIDE
     Indication: WOUND TREATMENT
     Dosage: UNK
     Route: 061

REACTIONS (7)
  - Nausea [Recovered/Resolved]
  - Unresponsive to stimuli [Recovered/Resolved]
  - Diarrhoea [Recovered/Resolved]
  - Wound infection [Unknown]
  - Hyperhidrosis [Recovered/Resolved]
  - Vomiting [Recovered/Resolved]
  - Neurological symptom [Recovered/Resolved]

NARRATIVE: CASE EVENT DATE: 20161101
